FAERS Safety Report 16207440 (Version 9)
Quarter: 2022Q2

REPORT INFORMATION
  Report Type: Spontaneous
  Country: US (occurrence: US)
  Receive Date: 20190417
  Receipt Date: 20220503
  Transmission Date: 20220721
  Serious: No
  Sender: FDA-Public Use
  Company Number: US-PFIZER INC-2018049607

PATIENT
  Age: 67 Year
  Sex: Female
  Weight: 79 kg

DRUGS (5)
  1. LYRICA [Suspect]
     Active Substance: PREGABALIN
     Indication: Neuropathy peripheral
     Dosage: 75 MG, 1X/DAY
     Dates: start: 20190110
  2. LYRICA [Suspect]
     Active Substance: PREGABALIN
     Indication: Pain
     Dosage: 150 MG, 1X/DAY
  3. LYRICA [Suspect]
     Active Substance: PREGABALIN
     Indication: Neuropathy peripheral
     Dosage: 300 MG, DAILY
     Dates: start: 20210114
  4. LYRICA [Suspect]
     Active Substance: PREGABALIN
     Indication: Lumbosacral radiculopathy
  5. LYRICA [Suspect]
     Active Substance: PREGABALIN
     Indication: Polyneuropathy

REACTIONS (3)
  - Pain in extremity [Unknown]
  - Hypoacusis [Unknown]
  - Otitis media [Unknown]
